FAERS Safety Report 9212819 (Version 1)
Quarter: 2013Q1

REPORT INFORMATION
  Report Type: Spontaneous
  Country: US (occurrence: None)
  Receive Date: 20120824
  Receipt Date: 20120824
  Transmission Date: 20140127
  Serious: Yes (Hospitalization)
  Sender: FDA-Public Use
  Company Number: A-NJ2012-61965

PATIENT
  Age: 62 Year
  Sex: Female

DRUGS (1)
  1. VELETRI (EPOPROSTENOL SODIUM) [Suspect]
     Indication: PULMONARY ARTERIAL HYPERTENSION
     Dosage: 24 NG/KG, PER MIN, IV DRIP
     Route: 042
     Dates: start: 20101222

REACTIONS (1)
  - Dyspnoea [None]
